FAERS Safety Report 4317132-9 (Version None)
Quarter: 2004Q1

REPORT INFORMATION
  Report Type: 
  Country: None (occurrence: None)
  Receive Date: 20040312
  Receipt Date: 20040304
  Transmission Date: 20041129
  Serious: Yes (Hospitalization, Other)
  Sender: FDA-Public Use
  Company Number: 2004011604

PATIENT
  Age: 51 Year
  Sex: Female

DRUGS (21)
  1. TAHOR (ATORVASTATIN) [Suspect]
     Indication: ILL-DEFINED DISORDER
     Dosage: 10 MG (DAILY), ORAL
     Route: 048
     Dates: end: 20030723
  2. DOTHIEPIN HYDROCHLORIDE [Suspect]
     Indication: ILL-DEFINED DISORDER
     Dosage: 75 MG (DAILY),ORAL
     Route: 048
     Dates: end: 20030723
  3. METFORMIN HCL [Suspect]
     Indication: ILL-DEFINED DISORDER
     Dosage: 1700 MG (BID), ORAL
     Route: 048
     Dates: end: 20030723
  4. VALPROMIDE (VALPROMIDE) [Suspect]
     Indication: ILL-DEFINED DISORDER
     Dosage: 900 MG (TID), ORAL
     Route: 048
     Dates: end: 20030723
  5. LOXAPINE [Suspect]
     Indication: ILL-DEFINED DISORDER
     Dosage: 150 MG (TID), ORAL
     Route: 048
     Dates: end: 20030723
  6. RAMIPRIL [Suspect]
     Indication: ILL-DEFINED DISORDER
     Dosage: 10 MG (DAILY), ORAL
     Route: 048
     Dates: end: 20030723
  7. HYDROXYZINE [Concomitant]
  8. LORAZEPAM [Concomitant]
  9. MEPRONIZINE (MEPROBAMATE, ACEPROMETAZINE) [Concomitant]
  10. ACETAMINOPHEN [Concomitant]
  11. DIMETICONE (DIMETICONE) [Concomitant]
  12. TROPATEPINE (TROPATEPINE) [Concomitant]
  13. ORLISTAT (ORLISTAT) [Concomitant]
  14. TRIMETAZIDINE (TRIMETAZIDINE) [Concomitant]
  15. AMPHOTERICIN B [Concomitant]
  16. ECONAZOLE (ECONAZOLE) [Concomitant]
  17. CARPIPRAMINE (CARPIPRAMINE) [Concomitant]
  18. MEPROBAMATE [Concomitant]
  19. ACEPROMETAZINE (ACEPROMETAZINE) [Concomitant]
  20. DIMETICONE, ACTIVATED (SIMETICONE) [Concomitant]
  21. ALUMINUM OXIDE (ALUMINUM OXIDE) [Concomitant]

REACTIONS (8)
  - ANURIA [None]
  - BLOOD GLUCOSE INCREASED [None]
  - DIALYSIS [None]
  - HYPOTENSION [None]
  - LACTIC ACIDOSIS [None]
  - PROTEIN TOTAL INCREASED [None]
  - RENAL FAILURE [None]
  - SEPSIS [None]
